FAERS Safety Report 5385366-0 (Version None)
Quarter: 2007Q3

REPORT INFORMATION
  Report Type: 
  Country: None (occurrence: None)
  Receive Date: 20070709
  Receipt Date: 20070627
  Transmission Date: 20080115
  Serious: Yes (Hospitalization)
  Sender: FDA-Public Use
  Company Number: 2007-02143

PATIENT
  Age: 69 Year
  Sex: Female
  Weight: 74 kg

DRUGS (2)
  1. VELCADE [Suspect]
     Indication: MYELODYSPLASTIC SYNDROME
     Dosage: 2.39 MG, INTRAVENOUS
     Route: 042
     Dates: start: 20061212, end: 20061222
  2. CYTARABINE [Suspect]
     Indication: MYELODYSPLASTIC SYNDROME
     Dosage: 18.00 MG, SUBCUTANEOUS
     Route: 058
     Dates: start: 20061212, end: 20061225

REACTIONS (2)
  - MELAENA [None]
  - PANCYTOPENIA [None]
